FAERS Safety Report 16669040 (Version 1)
Quarter: 2019Q3

REPORT INFORMATION
  Report Type: Spontaneous
  Country: US (occurrence: US)
  Receive Date: 20190805
  Receipt Date: 20190805
  Transmission Date: 20191004
  Serious: Yes (Other)
  Sender: FDA-Public Use
  Company Number: None

PATIENT
  Sex: Male

DRUGS (4)
  1. ENBREL [Suspect]
     Active Substance: ETANERCEPT
     Indication: RHEUMATOID ARTHRITIS
     Dosage: ?          OTHER FREQUENCY:WEEKLY;?
     Route: 058
     Dates: start: 20140117
  2. PREDNISONE, VITAMIN D3 [Concomitant]
  3. LEVOTHYROXIN, LISINOPRIL [Concomitant]
  4. ATORVASTATIN, HYDROCHLOROT [Concomitant]

REACTIONS (1)
  - Malignant melanoma [None]
